FAERS Safety Report 12336750 (Version 1)
Quarter: 2016Q2

REPORT INFORMATION
  Report Type: Spontaneous
  Country: US (occurrence: FR)
  Receive Date: 20160505
  Receipt Date: 20160505
  Transmission Date: 20160815
  Serious: Yes (Death)
  Sender: FDA-Public Use
  Company Number: FR-FRI-1000084370

PATIENT
  Age: 68 Year
  Sex: Male

DRUGS (20)
  1. PREVISCAN [Concomitant]
     Active Substance: FLUINDIONE
  2. DIFFU-K [Concomitant]
     Active Substance: POTASSIUM CHLORIDE
  3. SPIRONOLACTONE. [Concomitant]
     Active Substance: SPIRONOLACTONE
  4. CEFTAROLINE FOSAMIL [Suspect]
     Active Substance: CEFTAROLINE FOSAMIL
     Indication: CANDIDA INFECTION
     Dosage: 800 MG
     Route: 041
     Dates: start: 20160325, end: 20160329
  5. REPAGLINIDE. [Concomitant]
     Active Substance: REPAGLINIDE
  6. LANTUS [Concomitant]
     Active Substance: INSULIN GLARGINE
  7. FUCIDINE [Concomitant]
     Active Substance: FUSIDIC ACID
     Route: 048
     Dates: start: 20160311
  8. LASILIX [Concomitant]
     Active Substance: FUROSEMIDE
  9. ESIDREX [Concomitant]
     Active Substance: HYDROCHLOROTHIAZIDE
  10. ANCOTIL [Concomitant]
     Active Substance: FLUCYTOSINE
     Dosage: 16 DF
     Dates: start: 20160315
  11. PANTOPRAZOLE [Concomitant]
     Active Substance: PANTOPRAZOLE SODIUM
  12. OFLOXACIN. [Concomitant]
     Active Substance: OFLOXACIN
     Dates: start: 20160311
  13. TAHOR [Concomitant]
     Active Substance: ATORVASTATIN CALCIUM
  14. XALATAN [Concomitant]
     Active Substance: LATANOPROST
  15. BISOPROLOL [Concomitant]
     Active Substance: BISOPROLOL
  16. NOVORAPID [Concomitant]
     Active Substance: INSULIN ASPART
  17. TARDYFERON [Concomitant]
     Active Substance: FERROUS SULFATE\FOLIC ACID
  18. ARANESP [Concomitant]
     Active Substance: DARBEPOETIN ALFA
  19. ANCOTIL [Concomitant]
     Active Substance: FLUCYTOSINE
     Dosage: 4 DF
     Dates: start: 20160225, end: 20160314
  20. ALLOPURINOL. [Concomitant]
     Active Substance: ALLOPURINOL

REACTIONS (6)
  - Agranulocytosis [Fatal]
  - Leukopenia [Fatal]
  - Bone marrow toxicity [Fatal]
  - Multiple organ dysfunction syndrome [Fatal]
  - Thrombocytopenia [Fatal]
  - Neutropenia [Fatal]

NARRATIVE: CASE EVENT DATE: 20160329
